FAERS Safety Report 23685112 (Version 3)
Quarter: 2024Q2

REPORT INFORMATION
  Report Type: Other
  Country: PL (occurrence: PL)
  Receive Date: 20240329
  Receipt Date: 20240415
  Transmission Date: 20240715
  Serious: Yes (Hospitalization, Other)
  Sender: FDA-Public Use
  Company Number: None

PATIENT
  Age: 42 Year
  Sex: Male

DRUGS (33)
  1. IBUPROFEN [Suspect]
     Active Substance: IBUPROFEN
     Indication: Mastocytosis
     Dosage: UNK
     Route: 065
  2. IBUPROFEN [Suspect]
     Active Substance: IBUPROFEN
     Indication: Arthralgia
     Dosage: UNK
     Route: 065
  3. IBUPROFEN [Suspect]
     Active Substance: IBUPROFEN
     Indication: Analgesic therapy
  4. GABAPENTIN [Suspect]
     Active Substance: GABAPENTIN
     Indication: Arthralgia
     Dosage: 300 MILLIGRAM, TID
     Route: 065
  5. GABAPENTIN [Suspect]
     Active Substance: GABAPENTIN
     Indication: Pain
     Dosage: 300 MILLIGRAM, EVERY 8 HOURS (GABAPENTIN AT A DOSE OF 300 MG EVERY 8 HOURS)
     Route: 065
  6. GABAPENTIN [Suspect]
     Active Substance: GABAPENTIN
     Dosage: 300 MILLIGRAM (BUCCAL TABLET)
     Route: 065
  7. GABAPENTIN [Suspect]
     Active Substance: GABAPENTIN
     Dosage: 900 MILLIGRAM, QD (GABAPENTIN AT A DOSE OF 300 MG EVERY 8 HOURS; BUCCAL TABLET)
     Route: 065
  8. TRAMADOL [Suspect]
     Active Substance: TRAMADOL\TRAMADOL HYDROCHLORIDE
     Indication: Mastocytosis
     Dosage: UNK (BUCCAL TABLET)
     Route: 065
  9. TRAMADOL [Suspect]
     Active Substance: TRAMADOL\TRAMADOL HYDROCHLORIDE
     Indication: Arthralgia
     Dosage: UNK
     Route: 065
  10. MORPHINE SULFATE [Suspect]
     Active Substance: MORPHINE SULFATE
     Indication: Mastocytosis
     Dosage: UNK (BUCCAL TABLET)
     Route: 065
  11. MORPHINE SULFATE [Suspect]
     Active Substance: MORPHINE SULFATE
     Indication: Bone pain
     Dosage: UNK
     Route: 065
  12. OXYCODONE [Suspect]
     Active Substance: OXYCODONE\OXYCODONE HYDROCHLORIDE
     Indication: Arthralgia
     Dosage: 100 MILLIGRAM, EVERY 8 HOURS (100 MILLIGRAM, TID)
     Route: 065
  13. OXYCODONE [Suspect]
     Active Substance: OXYCODONE\OXYCODONE HYDROCHLORIDE
     Indication: Pain
     Dosage: UNK, QD (UNK, BID; BUCCAL TABLET)
     Route: 065
  14. OXYCODONE [Suspect]
     Active Substance: OXYCODONE\OXYCODONE HYDROCHLORIDE
     Dosage: 320 MILLIGRAM, QD (BID,TABLET, DELAYED RELEASE (320 MG IN 1 DAY; BUCCAL TABLET) )
     Route: 048
  15. OXYCODONE [Suspect]
     Active Substance: OXYCODONE\OXYCODONE HYDROCHLORIDE
     Dosage: 80 MILLIGRAM, EVERY 8 HOURS (240 MILLIGRAM DAILY; CONTROLLED-RELEASE TABLETS; BUCCAL TABLET)
     Route: 048
  16. OXYCODONE [Suspect]
     Active Substance: OXYCODONE\OXYCODONE HYDROCHLORIDE
     Dosage: 300 MILLIGRAM, QD (100 MILLIGRAM, TID; BUCCAL TABLET)
     Route: 065
  17. OXYCODONE [Suspect]
     Active Substance: OXYCODONE\OXYCODONE HYDROCHLORIDE
     Dosage: UNK, EVERY 12 HRS (UNK UNK, BID)
     Route: 065
  18. PREGABALIN [Suspect]
     Active Substance: PREGABALIN
     Indication: Pain
     Dosage: 300 MILLIGRAM QD (150 MG, 2X PER DAY)
     Route: 065
  19. FENTANYL [Suspect]
     Active Substance: FENTANYL\FENTANYL CITRATE
     Indication: Mastocytosis
     Dosage: 200 MICROGRAM (ADM MORE THAN 4 TIMES PER DAY DUE TO THE FREQUENT EXCEEDING OF FOUR ADMINISTRATIONS A
     Route: 002
  20. FENTANYL [Suspect]
     Active Substance: FENTANYL\FENTANYL CITRATE
     Indication: Arthralgia
     Dosage: 200 MICROGRAM (200 MG IN EXACERBATIONS OF PAIN)
     Route: 002
  21. FENTANYL [Suspect]
     Active Substance: FENTANYL\FENTANYL CITRATE
     Dosage: 200 MICROGRAM (ADM MORE THAN 4 TIMES PER DAY DUE TO THE FREQUENT EXCEEDING OF FOUR ADMINISTRATIONS A
     Route: 002
  22. FENTANYL [Suspect]
     Active Substance: FENTANYL\FENTANYL CITRATE
     Dosage: UNK
     Route: 045
  23. FENTANYL [Suspect]
     Active Substance: FENTANYL\FENTANYL CITRATE
     Dosage: UNK
     Route: 045
  24. FENTANYL [Suspect]
     Active Substance: FENTANYL\FENTANYL CITRATE
     Indication: Arthralgia
     Dosage: UNK
     Route: 045
  25. FENTANYL [Suspect]
     Active Substance: FENTANYL\FENTANYL CITRATE
     Indication: Mastocytosis
     Dosage: UNK
     Route: 045
  26. KETOPROFEN [Suspect]
     Active Substance: KETOPROFEN
     Indication: Mastocytosis
     Dosage: UNK
     Route: 065
  27. KETOPROFEN [Suspect]
     Active Substance: KETOPROFEN
     Indication: Arthralgia
  28. METAMIZOLE [Suspect]
     Active Substance: METAMIZOLE
     Indication: Mastocytosis
     Dosage: UNK
     Route: 065
  29. METAMIZOLE [Suspect]
     Active Substance: METAMIZOLE
     Indication: Bone pain
  30. ACETAMINOPHEN [Suspect]
     Active Substance: ACETAMINOPHEN
     Indication: Mastocytosis
     Dosage: UNK
     Route: 065
  31. ACETAMINOPHEN [Suspect]
     Active Substance: ACETAMINOPHEN
     Indication: Arthralgia
     Dosage: UNK
     Route: 065
  32. ACETAMINOPHEN [Suspect]
     Active Substance: ACETAMINOPHEN
     Indication: Analgesic therapy
  33. CLADRIBINE [Concomitant]
     Active Substance: CLADRIBINE
     Indication: Systemic mastocytosis
     Dosage: UNK
     Route: 065

REACTIONS (8)
  - Gingival pain [Not Recovered/Not Resolved]
  - Anaphylactic shock [Recovered/Resolved]
  - Toothache [Not Recovered/Not Resolved]
  - Rhinitis allergic [Recovered/Resolved]
  - Constipation [Unknown]
  - Hypersensitivity [Recovered/Resolved]
  - Drug dependence [Recovered/Resolved]
  - Product use in unapproved indication [Unknown]
